FAERS Safety Report 18978433 (Version 1)
Quarter: 2021Q1

REPORT INFORMATION
  Report Type: Other
  Country: GB (occurrence: GB)
  Receive Date: 20210307
  Receipt Date: 20210307
  Transmission Date: 20210420
  Serious: Yes (Hospitalization)
  Sender: FDA-Public Use
  Company Number: GB-CELLTRION INC.-2021GB002767

PATIENT

DRUGS (7)
  1. RAMIPRIL. [Concomitant]
     Active Substance: RAMIPRIL
     Indication: EJECTION FRACTION DECREASED
     Dosage: 2.5 MG EVERY DAY; DOSE FORM: 245
     Route: 048
     Dates: start: 20181113
  2. ANADIN [Concomitant]
     Dosage: 1000 MG, AS NEEDED (DOSE FORM: 245)
     Route: 048
  3. DEXAMETHASONE. [Concomitant]
     Active Substance: DEXAMETHASONE
     Dosage: 8 MG; DOSE FORM: 245
     Route: 048
     Dates: start: 20180218
  4. FILGRASTIM [Concomitant]
     Active Substance: FILGRASTIM
     Indication: PROPHYLAXIS
     Dosage: 300 MICROGRAM
     Route: 058
     Dates: start: 20180219
  5. TRASTUZUMAB (UNKNOWN) [Suspect]
     Active Substance: TRASTUZUMAB
     Indication: BREAST CANCER METASTATIC
     Dosage: 600 MG, EVERY 3 WEEKS; DOSE FORM: 231
     Route: 058
     Dates: start: 20180216
  6. PERTUZUMAB. [Suspect]
     Active Substance: PERTUZUMAB
     Indication: BREAST CANCER METASTATIC
     Dosage: 840 MG/KG, EVERY 3 WEEKS; DOSE FORM: 230
     Route: 042
     Dates: start: 20180216
  7. DOCETAXEL. [Suspect]
     Active Substance: DOCETAXEL
     Indication: BREAST CANCER METASTATIC
     Dosage: 120 MG, EVERY 3 WEEKS
     Route: 042
     Dates: start: 20180216, end: 20180601

REACTIONS (5)
  - Diarrhoea [Unknown]
  - Post procedural infection [Unknown]
  - Fatigue [Not Recovered/Not Resolved]
  - Pain in extremity [Recovered/Resolved]
  - Insomnia [Unknown]

NARRATIVE: CASE EVENT DATE: 20180327
